FAERS Safety Report 9397991 (Version 6)
Quarter: 2017Q4

REPORT INFORMATION
  Report Type: Report from Study
  Country: TR (occurrence: TR)
  Receive Date: 20130712
  Receipt Date: 20171031
  Transmission Date: 20180321
  Serious: Yes (Hospitalization)
  Sender: FDA-Public Use
  Company Number: PHHO2013TR008920

PATIENT
  Age: 47 Year
  Sex: Female
  Weight: 104 kg

DRUGS (8)
  1. FOLIC ACID. [Concomitant]
     Active Substance: FOLIC ACID
     Indication: PROPHYLAXIS
     Dosage: 5 MG, UNK
     Route: 048
     Dates: start: 201207
  2. DICLOFENAC [Concomitant]
     Active Substance: DICLOFENAC
     Indication: RHEUMATOID ARTHRITIS
     Dosage: 100 MG, QD
     Route: 048
     Dates: start: 201206, end: 20130702
  3. PREDNISOLONE. [Suspect]
     Active Substance: PREDNISOLONE
     Dosage: 10 MG, QD
     Route: 065
     Dates: start: 20130705
  4. PANTOPRAZOLE [Concomitant]
     Active Substance: PANTOPRAZOLE
     Indication: PROPHYLAXIS AGAINST GASTROINTESTINAL ULCER
     Dosage: 40 MG, QD
     Route: 048
     Dates: start: 200406
  5. GP2013 [Suspect]
     Active Substance: RITUXIMAB
     Indication: RHEUMATOID ARTHRITIS
     Dosage: 1000 MG, 2 WEEKS APART
     Route: 042
     Dates: start: 20130110
  6. MTX [Concomitant]
     Active Substance: METHOTREXATE SODIUM
     Indication: RHEUMATOID ARTHRITIS
     Dosage: 20 MG, QW
     Route: 030
     Dates: start: 20120809
  7. PREDNISOLONE. [Suspect]
     Active Substance: PREDNISOLONE
     Indication: RHEUMATOID ARTHRITIS
     Dosage: 2.5 MG, QD
     Route: 048
     Dates: start: 20130503, end: 20130702
  8. ISONIAZID. [Concomitant]
     Active Substance: ISONIAZID
     Indication: LATENT TUBERCULOSIS
     Dosage: 300 MG, QD
     Route: 048
     Dates: start: 20121213

REACTIONS (1)
  - Pyrexia [Recovered/Resolved]

NARRATIVE: CASE EVENT DATE: 20130603
